FAERS Safety Report 13646722 (Version 1)
Quarter: 2017Q2

REPORT INFORMATION
  Report Type: Spontaneous
  Country: US (occurrence: US)
  Receive Date: 20170612
  Receipt Date: 20170612
  Transmission Date: 20170830
  Serious: Yes (Hospitalization)
  Sender: FDA-Public Use
  Company Number: None

PATIENT
  Age: 85 Year
  Sex: Female

DRUGS (4)
  1. DULOXETINE. [Concomitant]
     Active Substance: DULOXETINE
  2. VESICARE [Concomitant]
     Active Substance: SOLIFENACIN SUCCINATE
  3. DRONABINOL. [Concomitant]
     Active Substance: DRONABINOL
  4. JADENU [Suspect]
     Active Substance: DEFERASIROX
     Indication: IRON METABOLISM DISORDER
     Dosage: DOSE AMOUNT - 2 QAM , 1 QPM?
     Route: 048
     Dates: start: 201601, end: 201706

REACTIONS (3)
  - Cervical vertebral fracture [None]
  - Therapy cessation [None]
  - Fall [None]

NARRATIVE: CASE EVENT DATE: 20170602
